FAERS Safety Report 7492955-6 (Version None)
Quarter: 2011Q2

REPORT INFORMATION
  Report Type: 
  Country: None (occurrence: None)
  Receive Date: 20110520
  Receipt Date: 20110510
  Transmission Date: 20111010
  Serious: Yes (Other)
  Sender: FDA-Public Use
  Company Number: IN-RANBAXY-2011RR-43808

PATIENT
  Age: 7 Year
  Sex: Male

DRUGS (2)
  1. METHYLPHENIDATE [Suspect]
     Indication: ATTENTION DEFICIT/HYPERACTIVITY DISORDER
     Dosage: 10 MG, UNK
  2. RISPERIDONE [Suspect]
     Indication: MILD MENTAL RETARDATION
     Dosage: 2 MG, UNK

REACTIONS (3)
  - AKATHISIA [None]
  - DYSKINESIA [None]
  - DRUG INTERACTION [None]
